FAERS Safety Report 17277545 (Version 1)
Quarter: 2020Q1

REPORT INFORMATION
  Report Type: Spontaneous
  Country: US (occurrence: US)
  Receive Date: 20191227
  Receipt Date: 20191227
  Transmission Date: 20200409
  Serious: No
  Sender: FDA-Public Use
  Company Number: None

PATIENT
  Age: 25 Year
  Sex: Male

DRUGS (1)
  1. ENBREL [Suspect]
     Active Substance: ETANERCEPT
     Route: 058
     Dates: start: 201907

REACTIONS (4)
  - Injection site swelling [None]
  - Injection site inflammation [None]
  - Product dose omission [None]
  - Injection site pruritus [None]

NARRATIVE: CASE EVENT DATE: 20191227
